FAERS Safety Report 23833809 (Version 1)
Quarter: 2024Q2

REPORT INFORMATION
  Report Type: Report from Study
  Country: US (occurrence: US)
  Receive Date: 20240509
  Receipt Date: 20240509
  Transmission Date: 20240716
  Serious: Yes (Hospitalization)
  Sender: FDA-Public Use
  Company Number: US-ABBVIE-5749223

PATIENT
  Sex: Female

DRUGS (1)
  1. HUMIRA [Suspect]
     Active Substance: ADALIMUMAB
     Indication: Rheumatoid arthritis
     Route: 058
     Dates: start: 20180926

REACTIONS (6)
  - Chronic obstructive pulmonary disease [Unknown]
  - Malaise [Recovering/Resolving]
  - Dyspnoea [Unknown]
  - Asthma [Unknown]
  - Feeling hot [Unknown]
  - Dysphonia [Recovering/Resolving]

NARRATIVE: CASE EVENT DATE: 20240101
